FAERS Safety Report 12979306 (Version 1)
Quarter: 2016Q4

REPORT INFORMATION
  Report Type: Spontaneous
  Country: US (occurrence: US)
  Receive Date: 20161128
  Receipt Date: 20161128
  Transmission Date: 20170207
  Serious: No
  Sender: FDA-Public Use
  Company Number: US-GLAXOSMITHKLINE-US2016173835

PATIENT
  Age: 33 Year
  Sex: Female

DRUGS (1)
  1. ABREVA [Suspect]
     Active Substance: DOCOSANOL
     Indication: ORAL HERPES
     Dosage: UNK, USED IT 5 TIMES
     Dates: start: 20161108, end: 201611

REACTIONS (4)
  - Incorrect drug administration duration [Unknown]
  - Live birth [Unknown]
  - Breast feeding [Unknown]
  - Inappropriate schedule of drug administration [Unknown]
